FAERS Safety Report 4539234-4 (Version None)
Quarter: 2004Q4

REPORT INFORMATION
  Report Type: 
  Country: None (occurrence: None)
  Receive Date: 20041222
  Receipt Date: 20041214
  Transmission Date: 20050328
  Serious: Yes (Other)
  Sender: FDA-Public Use
  Company Number: 2004112294

PATIENT
  Sex: Male

DRUGS (3)
  1. TAHOR (ATORVASTATIN) [Suspect]
     Indication: ILL-DEFINED DISORDER
     Dosage: 40 MG (DALY), ORAL
     Route: 048
  2. ACETYLSALICYLIC ACID SRT [Concomitant]
  3. AMLODIPINE [Concomitant]

REACTIONS (1)
  - HEPATITIS E [None]
